FAERS Safety Report 6423898-4 (Version None)
Quarter: 2009Q4

REPORT INFORMATION
  Report Type: 
  Country: None (occurrence: None)
  Receive Date: 20091102
  Receipt Date: 20091020
  Transmission Date: 20100525
  Serious: Yes (Other)
  Sender: FDA-Public Use
  Company Number: PHHY2009BR40277

PATIENT
  Sex: Female
  Weight: 74 kg

DRUGS (3)
  1. EXFORGE [Suspect]
     Indication: HYPERTENSION
     Dosage: 1 TABLET IN THE MORNING
     Route: 048
     Dates: start: 20070901
  2. EXFORGE [Suspect]
     Indication: CARDIAC DISORDER
  3. BIROCAL [Concomitant]
     Dosage: UNK
     Route: 048

REACTIONS (3)
  - CATARACT [None]
  - CATARACT OPERATION [None]
  - HEADACHE [None]
